FAERS Safety Report 9895041 (Version 1)
Quarter: 2014Q1

REPORT INFORMATION
  Report Type: Spontaneous
  Country: US (occurrence: US)
  Receive Date: 20140213
  Receipt Date: 20140213
  Transmission Date: 20141002
  Serious: No
  Sender: FDA-Public Use
  Company Number: US-BRISTOL-MYERS SQUIBB COMPANY-17343260

PATIENT
  Age: 60 Year
  Sex: Female
  Weight: 82.54 kg

DRUGS (8)
  1. ABATACEPT SUBQ INJECTION 125MG/ML [Suspect]
     Indication: RHEUMATOID ARTHRITIS
     Route: 058
     Dates: start: 201212
  2. XANAX [Concomitant]
  3. CALCIUM [Concomitant]
  4. ARAVA [Concomitant]
  5. ANTIHISTAMINE NOS [Concomitant]
  6. FOLIC ACID [Concomitant]
  7. HYDROCHLOROTHIAZIDE [Concomitant]
  8. DEXTROSE [Concomitant]

REACTIONS (1)
  - Influenza [Recovered/Resolved]
